FAERS Safety Report 15965042 (Version 1)
Quarter: 2019Q1

REPORT INFORMATION
  Report Type: Spontaneous
  Country: GB (occurrence: GB)
  Receive Date: 20190215
  Receipt Date: 20190215
  Transmission Date: 20190418
  Serious: Yes (Hospitalization)
  Sender: FDA-Public Use
  Company Number: GB-ACCORD-106425

PATIENT
  Age: 83 Year
  Sex: Female
  Weight: 60 kg

DRUGS (7)
  1. RANITIDINE. [Concomitant]
     Active Substance: RANITIDINE
     Indication: BARRETT^S OESOPHAGUS
     Dosage: UNK
     Route: 065
     Dates: start: 20170405
  2. SOLIFENACIN/SOLIFENACIN SUCCINATE [Concomitant]
     Indication: POLLAKIURIA
     Dosage: UNK
     Route: 065
     Dates: start: 20150203
  3. RAMIPRIL. [Suspect]
     Active Substance: RAMIPRIL
     Indication: HYPERTENSION
     Dosage: 2.5 MG, QD
     Route: 048
     Dates: start: 20160119, end: 20160119
  4. DABIGATRAN [Concomitant]
     Active Substance: DABIGATRAN
     Dosage: UNK
     Route: 065
     Dates: start: 20170710
  5. FUROSEMIDE. [Concomitant]
     Active Substance: FUROSEMIDE
     Indication: DYSPNOEA
     Dosage: UNK
     Route: 065
     Dates: start: 20171019
  6. DABIGATRAN/DABIGATRAN ETEXILATE [Concomitant]
     Indication: ATRIAL FIBRILLATION
     Dosage: UNK
     Route: 065
     Dates: start: 20170710
  7. RAMIPRIL. [Suspect]
     Active Substance: RAMIPRIL
     Indication: HYPERTENSION
     Dosage: 2.5 MG, UNK
     Route: 048
     Dates: start: 20180204, end: 20180204

REACTIONS (1)
  - Chest pain [Recovered/Resolved]

NARRATIVE: CASE EVENT DATE: 20180203
